FAERS Safety Report 7050091-7 (Version None)
Quarter: 2010Q4

REPORT INFORMATION
  Report Type: 
  Country: None (occurrence: None)
  Receive Date: 20101012
  Receipt Date: 20100928
  Transmission Date: 20110411
  Serious: Yes (Hospitalization)
  Sender: FDA-Public Use
  Company Number: US-003808

PATIENT
  Sex: Male

DRUGS (2)
  1. TEV-TROPIN [Suspect]
     Indication: PRODUCT USED FOR UNKNOWN INDICATION
     Dosage: (1.8 MG QD SUBCUTANEOUS)
     Route: 058
     Dates: start: 20090901
  2. ZOLOFT [Concomitant]

REACTIONS (1)
  - SUICIDE ATTEMPT [None]
